FAERS Safety Report 23850881 (Version 1)
Quarter: 2024Q2

REPORT INFORMATION
  Report Type: Spontaneous
  Country: US (occurrence: US)
  Receive Date: 20240514
  Receipt Date: 20240514
  Transmission Date: 20240716
  Serious: No
  Sender: FDA-Public Use
  Company Number: US-AUROBINDO-AUR-APL-2023-047111

PATIENT
  Age: 61 Year
  Sex: Male

DRUGS (1)
  1. TADALAFIL [Suspect]
     Active Substance: TADALAFIL
     Indication: Product used for unknown indication
     Dosage: UNK, SIDE EFFECTS W/ NDC 35573-410-30 AND WITH 35573-461-30
     Route: 048

REACTIONS (4)
  - Nasal congestion [Unknown]
  - Urine output fluctuation [Unknown]
  - Drug ineffective [Unknown]
  - Product quality issue [Unknown]
